FAERS Safety Report 7206254-0 (Version None)
Quarter: 2011Q1

REPORT INFORMATION
  Report Type: 
  Country: None (occurrence: None)
  Receive Date: 20110103
  Receipt Date: 20101221
  Transmission Date: 20110831
  Serious: Yes (Other)
  Sender: FDA-Public Use
  Company Number: PHFR2010GB04687

PATIENT
  Sex: Female
  Weight: 74.4 kg

DRUGS (5)
  1. CLOZARIL [Suspect]
     Dosage: UNK
     Dates: start: 20100621
  2. VALPROATE SODIUM [Concomitant]
     Dosage: UNK
     Route: 048
  3. PIRENZEPINE [Concomitant]
     Indication: SALIVARY HYPERSECRETION
     Dosage: UNK
     Route: 048
     Dates: start: 20100928
  4. LACTULOSE [Concomitant]
     Indication: CONSTIPATION
     Dosage: UNK
     Route: 048
     Dates: start: 20101011
  5. CLOZARIL [Suspect]
     Indication: SCHIZOPHRENIA
     Dosage: UNK
     Route: 048
     Dates: start: 20100510

REACTIONS (6)
  - VOMITING [None]
  - BLOOD AMYLASE INCREASED [None]
  - EAR INFECTION [None]
  - INFLUENZA LIKE ILLNESS [None]
  - ABDOMINAL PAIN [None]
  - BODY TEMPERATURE INCREASED [None]
